FAERS Safety Report 21615441 (Version 1)
Quarter: 2022Q4

REPORT INFORMATION
  Report Type: Spontaneous
  Country: NL (occurrence: NL)
  Receive Date: 20221118
  Receipt Date: 20221118
  Transmission Date: 20230113
  Serious: Yes (Life-Threatening, Hospitalization)
  Sender: FDA-Public Use
  Company Number: None

PATIENT
  Sex: Male
  Weight: 110 kg

DRUGS (4)
  1. AMLODIPINE [Suspect]
     Active Substance: AMLODIPINE BESYLATE
     Indication: Hypertension
     Dosage: 5 MILLIGRAM DAILY; 1X PER DAY 1 PIECE, FORM STRENGTH :5MG , UNIT DOSE :5 MG ,BRAND NAME NOT SPECIFIE
     Dates: start: 20221026, end: 20221031
  2. SIMVASTATIN [Concomitant]
     Active Substance: SIMVASTATIN
     Indication: Product used for unknown indication
     Dosage: 40 MG (MILLIGRAM) , FO ,FORM STRENGTH :40MG , BRAND NAME NOT SPECIFIED,THERAPY START AND DATE :ASKU
  3. PANTOPRAZOLE SODIUM [Concomitant]
     Active Substance: PANTOPRAZOLE SODIUM
     Indication: Product used for unknown indication
     Dosage: 40 MG(MILLIGRAM),MSR ,FORM STRENGTH :40MG,BRAND NAME NOT SPECIFIED ,THERAPY START AND END DATE :ASKU
  4. CLOPIDOGREL [Concomitant]
     Active Substance: CLOPIDOGREL BISULFATE
     Indication: Product used for unknown indication
     Dosage: 75 MG (MILLIGRAM) ,FORM STRENGTH :75MG ,BRAND NAME NOT SPECIFIED ,THERAPY START AND END DATE :ASKU

REACTIONS (1)
  - Angioedema [Recovered/Resolved]
